FAERS Safety Report 10066864 (Version 2)
Quarter: 2014Q2

REPORT INFORMATION
  Report Type: Report from Study
  Country: NL (occurrence: NL)
  Receive Date: 20140408
  Receipt Date: 20140421
  Transmission Date: 20141212
  Serious: Yes (Death)
  Sender: FDA-Public Use
  Company Number: PHHY2014NL042048

PATIENT
  Sex: Female

DRUGS (4)
  1. ZOMETA [Suspect]
     Indication: HYPERCALCAEMIA
     Dosage: 4 MG PER 100 ML, ONCE PER 4 WEEKS
     Route: 041
  2. ZOMETA [Suspect]
     Dosage: 4 MG PER 100 ML, ONCE PER 4 WEEKS
     Route: 041
     Dates: start: 20140204
  3. ZOMETA [Suspect]
     Dosage: 4 MG PER 100 ML, ONCE PER 4 WEEKS
     Route: 041
     Dates: start: 20140227
  4. ZOMETA [Suspect]
     Dosage: 4 MG PER 100 ML, ONCE PER 4 WEEKS
     Route: 041
     Dates: start: 20140310

REACTIONS (1)
  - Sedation [Fatal]
